FAERS Safety Report 8781101 (Version 2)
Quarter: 2013Q1

REPORT INFORMATION
  Report Type: Spontaneous
  Country: US (occurrence: US)
  Receive Date: 20120913
  Receipt Date: 20130123
  Transmission Date: 20140127
  Serious: No
  Sender: FDA-Public Use
  Company Number: US-009507513-1208USA011557

PATIENT
  Sex: Female
  Weight: 53.52 kg

DRUGS (4)
  1. PEGINTRON [Suspect]
     Indication: HEPATITIS C
     Dosage: UNK
     Dates: start: 20111212, end: 20120107
  2. PEGINTRON [Suspect]
     Dosage: UNK
     Dates: start: 20120212, end: 20121216
  3. REBETOL [Suspect]
     Indication: HEPATITIS C
     Dosage: UNK
     Dates: start: 20111212, end: 20120107
  4. REBETOL [Suspect]
     Dosage: UNK
     Dates: start: 20120212, end: 20121023

REACTIONS (8)
  - Weight decreased [Unknown]
  - Decreased appetite [Unknown]
  - Nausea [Unknown]
  - Vomiting [Unknown]
  - Hepatitis C RNA increased [Unknown]
  - Oedema [Unknown]
  - Weight decreased [Unknown]
  - Thirst [Unknown]
